FAERS Safety Report 18202976 (Version 3)
Quarter: 2020Q3

REPORT INFORMATION
  Report Type: Spontaneous
  Country: US (occurrence: US)
  Receive Date: 20200827
  Receipt Date: 20200919
  Transmission Date: 20201103
  Serious: Yes (Other)
  Sender: FDA-Public Use
  Company Number: US-SERVIER-S20008132

PATIENT

DRUGS (13)
  1. ONCASPAR [Suspect]
     Active Substance: PEGASPARGASE
     Indication: ACUTE LYMPHOCYTIC LEUKAEMIA
     Dosage: 4050 IU
     Dates: start: 20200630, end: 20200630
  2. TN UNSPECIFIED [Concomitant]
     Indication: PREMEDICATION
     Dosage: 8 MG, ONE DOSE
     Route: 042
     Dates: start: 20200630, end: 20200630
  3. NORCO [Concomitant]
     Active Substance: ACETAMINOPHEN\HYDROCODONE BITARTRATE
     Indication: PAIN
     Dosage: UNK
     Route: 048
  4. TN UNSPECIFIED [Concomitant]
     Indication: HYPOCALCAEMIA
     Dosage: 500 MG, BID
     Route: 048
  5. TN UNSPECIFIED [Concomitant]
     Indication: PREMEDICATION
     Dosage: 50 MG
     Route: 048
     Dates: start: 20200630, end: 20200630
  6. TN UNSPECIFIED [Concomitant]
     Indication: PRODUCT USED FOR UNKNOWN INDICATION
     Dosage: UNK, QID
     Route: 055
  7. KEPPRA [Concomitant]
     Active Substance: LEVETIRACETAM
     Indication: SEIZURE
     Dosage: 500 MG, Q12H
     Route: 048
  8. TN UNSPECIFIED [Concomitant]
     Indication: PROPHYLAXIS
     Dosage: 1 TAB
     Route: 048
     Dates: start: 20200627, end: 20200628
  9. TN UNSPECIFIED [Concomitant]
     Indication: PREMEDICATION
     Dosage: 56 MG, ONE DOSE
     Route: 042
     Dates: start: 20200630, end: 20200630
  10. TN UNSPECIFIED [Concomitant]
     Indication: SEASONAL ALLERGY
     Route: 048
  11. TN UNSPECIFIED [Concomitant]
     Indication: VITAMIN SUPPLEMENTATION
     Dosage: 1 CAP, BID
     Route: 048
  12. MIRALAX [Concomitant]
     Active Substance: POLYETHYLENE GLYCOL 3350
     Indication: CONSTIPATION
     Dosage: UNK
     Route: 048
  13. TN UNSPECIFIED [Concomitant]
     Indication: HYPOMAGNESAEMIA
     Dosage: 400 MG, BID
     Route: 048

REACTIONS (1)
  - Hypersensitivity [Recovered/Resolved]

NARRATIVE: CASE EVENT DATE: 20200630
